FAERS Safety Report 7310828-6 (Version None)
Quarter: 2011Q1

REPORT INFORMATION
  Report Type: 
  Country: None (occurrence: None)
  Receive Date: 20110224
  Receipt Date: 20110221
  Transmission Date: 20110831
  Serious: Yes (Death, Hospitalization, Other)
  Sender: FDA-Public Use
  Company Number: PHHY2010US31635

PATIENT
  Sex: Female
  Weight: 59 kg

DRUGS (13)
  1. VALTREX [Concomitant]
     Indication: HERPES ZOSTER
     Dosage: 1000 MG, BID
     Route: 048
     Dates: start: 20100407, end: 20100414
  2. PROCHLORPERAZINE [Concomitant]
  3. ANTINEOPLASTIC AGENTS [Concomitant]
     Dosage: UNK
  4. DACOGEN [Concomitant]
     Dosage: UNK
     Dates: start: 20100419
  5. ANALGESICS [Concomitant]
     Dosage: UNK
  6. ZOFRAN [Concomitant]
  7. EXJADE [Suspect]
     Indication: ACUTE MYELOID LEUKAEMIA
     Dosage: 500 MG, DAILY
     Route: 048
     Dates: start: 20100320
  8. EXJADE [Suspect]
     Dosage: 1000 MG DAILY
     Route: 048
     Dates: start: 20100323, end: 20100419
  9. TEGRETOL [Concomitant]
  10. TESSALON [Concomitant]
  11. TYLENOL [Concomitant]
     Dosage: 500 MG EVERY 4 HOUR WHEN NEEDED
     Route: 048
  12. SLOW-MAG [Concomitant]
  13. COLACE [Concomitant]

REACTIONS (5)
  - PLATELET COUNT DECREASED [None]
  - EPISTAXIS [None]
  - RENAL FAILURE [None]
  - INFECTION [None]
  - GENERAL PHYSICAL HEALTH DETERIORATION [None]
